FAERS Safety Report 24642862 (Version 1)
Quarter: 2024Q4

REPORT INFORMATION
  Report Type: Spontaneous
  Country: CA (occurrence: CA)
  Receive Date: 20241120
  Receipt Date: 20241120
  Transmission Date: 20250115
  Serious: Yes (Other)
  Sender: PFIZER
  Company Number: CA-PFIZER INC-202400303197

PATIENT
  Age: 70 Year
  Sex: Female

DRUGS (2)
  1. RUXIENCE [Suspect]
     Active Substance: RITUXIMAB-PVVR
     Indication: Rheumatoid arthritis
     Dosage: 1000 MG ON DAY 1 AND DAY 15
     Route: 042
     Dates: start: 20240514, end: 20240528
  2. LISINOPRIL [Concomitant]
     Active Substance: LISINOPRIL
     Dosage: 1 DF

REACTIONS (3)
  - Cerebrovascular accident [Unknown]
  - Cataract [Unknown]
  - Dental implantation [Unknown]

NARRATIVE: CASE EVENT DATE: 20240720
